FAERS Safety Report 22960036 (Version 2)
Quarter: 2024Q1

REPORT INFORMATION
  Report Type: Report from Study
  Country: CA (occurrence: CA)
  Receive Date: 20230920
  Receipt Date: 20240312
  Transmission Date: 20240409
  Serious: Yes (Hospitalization, Other)
  Sender: FDA-Public Use
  Company Number: CA-CELLTRION INC.-2023CA018133

PATIENT

DRUGS (9)
  1. RITUXIMAB [Suspect]
     Active Substance: RITUXIMAB
     Indication: Rheumatoid arthritis
     Route: 042
  2. CELEBREX [Concomitant]
     Active Substance: CELECOXIB
  3. CYMBALTA [Concomitant]
     Active Substance: DULOXETINE HYDROCHLORIDE
  4. ESOMEPRAZOLE [Concomitant]
     Active Substance: ESOMEPRAZOLE
     Route: 065
  5. LYRICA [Concomitant]
     Active Substance: PREGABALIN
  6. OMALIZUMAB [Concomitant]
     Active Substance: OMALIZUMAB
  7. PREDNISONE [Concomitant]
     Active Substance: PREDNISONE
  8. PROLIA [Concomitant]
     Active Substance: DENOSUMAB
     Dosage: PROLIA PRE-FILLED SYRINGE. PRESERVATIVE-FREE.
  9. VALSARTAN [Concomitant]
     Active Substance: VALSARTAN

REACTIONS (3)
  - Thrombosis [Recovering/Resolving]
  - COVID-19 [Recovering/Resolving]
  - Pneumonia [Recovering/Resolving]
